FAERS Safety Report 14246317 (Version 2)
Quarter: 2018Q2

REPORT INFORMATION
  Report Type: Spontaneous
  Country: FR (occurrence: FR)
  Receive Date: 20171204
  Receipt Date: 20180528
  Transmission Date: 20180711
  Serious: Yes (Other)
  Sender: FDA-Public Use
  Company Number: FR-MERCK KGAA-2036556

PATIENT
  Age: 57 Year
  Sex: Female
  Weight: 70 kg

DRUGS (1)
  1. NOVOTHYROX [Suspect]
     Active Substance: LEVOTHYROXINE SODIUM
     Indication: HYPOTHYROIDISM
     Route: 048

REACTIONS (19)
  - Constipation [Not Recovered/Not Resolved]
  - Blood parathyroid hormone increased [Recovered/Resolved]
  - Blood thyroid stimulating hormone decreased [Recovered/Resolved]
  - Weight increased [Not Recovered/Not Resolved]
  - Depression [None]
  - Depressed mood [None]
  - Fatigue [Not Recovered/Not Resolved]
  - Headache [Not Recovered/Not Resolved]
  - Blood thyroid stimulating hormone increased [Recovered/Resolved]
  - Red blood cell sedimentation rate increased [None]
  - Myalgia [Not Recovered/Not Resolved]
  - Hypertension [Not Recovered/Not Resolved]
  - Nausea [None]
  - Thyroxine free decreased [Recovered/Resolved]
  - C-reactive protein increased [None]
  - Anti-thyroid antibody positive [None]
  - Dyspnoea [None]
  - Gait disturbance [None]
  - Somnolence [None]

NARRATIVE: CASE EVENT DATE: 20170315
